FAERS Safety Report 8572961-0 (Version None)
Quarter: 2012Q3

REPORT INFORMATION
  Report Type: 
  Country: None (occurrence: None)
  Receive Date: 20120806
  Receipt Date: 20120801
  Transmission Date: 20120928
  Serious: Yes (Hospitalization)
  Sender: FDA-Public Use
  Company Number: PR-ABBOTT-12P-131-0956224-00

PATIENT
  Sex: Female

DRUGS (6)
  1. PREDNISONE [Concomitant]
     Indication: RHEUMATOID ARTHRITIS
     Dosage: 5-10 MILLIGRAMS, 1-2 TABLETS DAILY AS NEEDED FOR PAIN
     Route: 048
  2. SYNTHROID [Concomitant]
     Indication: THYROID DISORDER
     Route: 048
  3. HUMIRA [Suspect]
     Indication: RHEUMATOID ARTHRITIS
     Route: 058
     Dates: end: 20120627
  4. ACETAMINOPHEN [Concomitant]
     Indication: RHEUMATOID ARTHRITIS
     Dosage: AS NEEDED FOR PAIN
     Route: 048
  5. FOLIC ACID [Concomitant]
     Indication: RHEUMATOID ARTHRITIS
     Route: 048
  6. ATACAN 32 W DIURETIC [Concomitant]
     Indication: HYPERTENSION
     Route: 048

REACTIONS (2)
  - KNEE ARTHROPLASTY [None]
  - HAEMOGLOBIN DECREASED [None]
